FAERS Safety Report 12100668 (Version 2)
Quarter: 2016Q1

REPORT INFORMATION
  Report Type: Spontaneous
  Country: US (occurrence: US)
  Receive Date: 20160222
  Receipt Date: 20160315
  Transmission Date: 20160526
  Serious: No
  Sender: FDA-Public Use
  Company Number: US-GLAXOSMITHKLINE-A0829884A

PATIENT
  Sex: Male

DRUGS (4)
  1. ENBREL [Suspect]
     Active Substance: ETANERCEPT
     Indication: PRODUCT USED FOR UNKNOWN INDICATION
  2. METHOTREXATE [Suspect]
     Active Substance: METHOTREXATE
     Indication: PRODUCT USED FOR UNKNOWN INDICATION
  3. SORIATANE [Suspect]
     Active Substance: ACITRETIN
     Indication: PSORIASIS
     Dosage: 25 MG, UNK
     Route: 048
     Dates: start: 20010615
  4. COSENTYX [Suspect]
     Active Substance: SECUKINUMAB
     Dosage: UNK
     Dates: start: 20150624

REACTIONS (10)
  - Skin atrophy [Unknown]
  - Inflammation [Unknown]
  - Skin fissures [Unknown]
  - Drug ineffective [Unknown]
  - Erythema [Unknown]
  - Bacterial infection [Unknown]
  - Impaired work ability [Unknown]
  - Headache [Recovering/Resolving]
  - Feeling abnormal [Unknown]
  - Skin exfoliation [Unknown]
